FAERS Safety Report 18052992 (Version 2)
Quarter: 2020Q3

REPORT INFORMATION
  Report Type: Other
  Country: CA (occurrence: CA)
  Receive Date: 20200721
  Receipt Date: 20200803
  Transmission Date: 20201103
  Serious: No
  Sender: FDA-Public Use
  Company Number: CA-ROCHE-2643938

PATIENT
  Age: 6 Year
  Sex: Male

DRUGS (2)
  1. HEMLIBRA [Suspect]
     Active Substance: EMICIZUMAB-KXWH
     Indication: HAEMOPHILIA
     Route: 058
  2. NIASTASE [Concomitant]
     Active Substance: COAGULATION FACTOR VIIA RECOMBINANT HUMAN

REACTIONS (1)
  - Soft tissue haemorrhage [Unknown]

NARRATIVE: CASE EVENT DATE: 202001
